FAERS Safety Report 23459899 (Version 1)
Quarter: 2024Q1

REPORT INFORMATION
  Report Type: Spontaneous
  Country: US (occurrence: US)
  Receive Date: 20240131
  Receipt Date: 20240131
  Transmission Date: 20240409
  Serious: Yes (Death, Hospitalization, Other)
  Sender: FDA-Public Use
  Company Number: US-SUN PHARMACEUTICAL INDUSTRIES LTD-2024R1-429071

PATIENT
  Age: 67 Year
  Sex: Male

DRUGS (9)
  1. AZITHROMYCIN [Suspect]
     Active Substance: AZITHROMYCIN
     Indication: Antibiotic therapy
     Dosage: UNK
     Route: 065
  2. CEFTRIAXONE [Suspect]
     Active Substance: CEFTRIAXONE\CEFTRIAXONE SODIUM
     Indication: Antibiotic therapy
     Dosage: UNK
     Route: 065
  3. DILTIAZEM [Suspect]
     Active Substance: DILTIAZEM
     Indication: Bronchitis
     Dosage: UNK
     Route: 065
  4. DILTIAZEM [Suspect]
     Active Substance: DILTIAZEM
     Indication: Pneumonia
  5. LEVOFLOXACIN [Suspect]
     Active Substance: LEVOFLOXACIN
     Indication: Pneumonia
     Dosage: UNK (750 MG)
     Route: 065
  6. LEVOFLOXACIN [Suspect]
     Active Substance: LEVOFLOXACIN
     Indication: Bronchitis
  7. PREDNISONE [Suspect]
     Active Substance: PREDNISONE
     Indication: Pneumonia
     Dosage: 40 MILLIGRAM
     Route: 065
  8. PREDNISONE [Suspect]
     Active Substance: PREDNISONE
     Indication: Bronchitis
  9. VANCOMYCIN [Suspect]
     Active Substance: VANCOMYCIN
     Indication: Antibiotic therapy
     Dosage: UNK
     Route: 065

REACTIONS (1)
  - Condition aggravated [Fatal]
